FAERS Safety Report 16767024 (Version 5)
Quarter: 2021Q3

REPORT INFORMATION
  Report Type: Spontaneous
  Country: US (occurrence: US)
  Receive Date: 20190903
  Receipt Date: 20210804
  Transmission Date: 20211014
  Serious: No
  Sender: FDA-Public Use
  Company Number: US-PFIZER INC-2016354301

PATIENT
  Age: 30 Year
  Sex: Female

DRUGS (4)
  1. LYRICA [Suspect]
     Active Substance: PREGABALIN
     Indication: FACET JOINT SYNDROME
  2. LYRICA [Suspect]
     Active Substance: PREGABALIN
     Indication: CERVICAL DISCHARGE
     Dosage: 100 MG, 3X/DAY
     Route: 048
  3. LYRICA [Suspect]
     Active Substance: PREGABALIN
     Indication: SPINAL OSTEOARTHRITIS
  4. LYRICA [Suspect]
     Active Substance: PREGABALIN
     Indication: CERVICAL SPINAL STENOSIS
     Dosage: 400 MG, (FOUR 100 (MG) CAPSULES)

REACTIONS (5)
  - Joint injury [Unknown]
  - Intentional product use issue [Unknown]
  - Pain [Unknown]
  - Spinal pain [Unknown]
  - Pain in extremity [Unknown]
